FAERS Safety Report 7334137-4 (Version None)
Quarter: 2011Q1

REPORT INFORMATION
  Report Type: 
  Country: None (occurrence: None)
  Receive Date: 20110307
  Receipt Date: 20110224
  Transmission Date: 20110831
  Serious: Yes (Hospitalization)
  Sender: FDA-Public Use
  Company Number: US-AMGEN-USACT2011010816

PATIENT
  Age: 60 Year
  Sex: Female

DRUGS (17)
  1. DOXORUBICIN [Suspect]
     Indication: B-CELL LYMPHOMA
     Dosage: 84 MG, UNK
     Route: 042
     Dates: start: 20110202
  2. FIORICET [Concomitant]
  3. SENNA LAX [Concomitant]
  4. MESNA [Suspect]
     Indication: B-CELL LYMPHOMA
     Dosage: 1008 MG, UNK
     Route: 042
     Dates: start: 20110202
  5. DEXAMETHASONE [Suspect]
     Indication: B-CELL LYMPHOMA
     Dosage: 40 MG, UNK
     Route: 048
     Dates: start: 20110202
  6. PANTOPRAZOLE [Concomitant]
  7. VINCRISTINE [Suspect]
     Indication: B-CELL LYMPHOMA
     Dosage: 2 MG, UNK
     Route: 042
     Dates: start: 20110202
  8. NEUPOGEN [Concomitant]
  9. FLUCONAZOLE [Concomitant]
  10. CYCLOPHOSPHAMIDE [Suspect]
     Indication: B-CELL LYMPHOMA
     Dosage: 504 MG, UNK
     Route: 042
     Dates: start: 20110202
  11. FLEXERIL [Concomitant]
  12. HEPARIN [Concomitant]
  13. RITUXIMAB [Suspect]
     Indication: B-CELL LYMPHOMA
     Dosage: 630 MG, UNK
     Route: 042
     Dates: start: 20110202
  14. OXYCODONE [Concomitant]
  15. VALTREX [Concomitant]
  16. PEGFILGRASTIM [Suspect]
     Indication: B-CELL LYMPHOMA
     Dosage: UNK
  17. ZOFRAN [Concomitant]

REACTIONS (1)
  - INFECTION [None]
